FAERS Safety Report 22610469 (Version 1)
Quarter: 2023Q2

REPORT INFORMATION
  Report Type: Spontaneous
  Country: JP (occurrence: JP)
  Receive Date: 20230616
  Receipt Date: 20230616
  Transmission Date: 20230722
  Serious: Yes (Hospitalization)
  Sender: FDA-Public Use
  Company Number: JP-ELI_LILLY_AND_COMPANY-JP202306006218

PATIENT
  Age: 74 Year
  Sex: Male

DRUGS (8)
  1. MOUNJARO [Suspect]
     Active Substance: TIRZEPATIDE
     Indication: Product used for unknown indication
     Dosage: 2.5 MG
     Route: 058
     Dates: start: 20230418, end: 20230418
  2. JARDIANCE [Concomitant]
     Active Substance: EMPAGLIFLOZIN
  3. TELMISARTAN [Concomitant]
     Active Substance: TELMISARTAN
  4. ESOMEPRAZOLE [Concomitant]
     Active Substance: ESOMEPRAZOLE
  5. PITAVASTATIN [Concomitant]
     Active Substance: PITAVASTATIN
  6. TAMSULOSIN [Concomitant]
     Active Substance: TAMSULOSIN
  7. HANGEKOBOKUTO [MAGNOLIA SPP. BARK;PERILLA FRU [Concomitant]
  8. VIBEGRON [Concomitant]
     Active Substance: VIBEGRON

REACTIONS (1)
  - Cholangitis [Recovered/Resolved]

NARRATIVE: CASE EVENT DATE: 20230420
